FAERS Safety Report 5855028-1 (Version None)
Quarter: 2008Q3

REPORT INFORMATION
  Report Type: 
  Country: None (occurrence: None)
  Receive Date: 20080822
  Receipt Date: 20080605
  Transmission Date: 20090109
  Serious: No
  Sender: FDA-Public Use
  Company Number: US-ABBOTT-08P-163-0455276-00

PATIENT
  Age: 53 Year
  Sex: Female

DRUGS (1)
  1. SYNTHROID [Suspect]
     Indication: HYPOTHYROIDISM
     Dosage: 75 MG 2X A WEEK, THEN 50 MG 5X A WEEK
     Route: 048
     Dates: start: 19780101

REACTIONS (2)
  - BLOOD THYROID STIMULATING HORMONE ABNORMAL [None]
  - CYSTITIS [None]
